FAERS Safety Report 5054536-3 (Version None)
Quarter: 2006Q3

REPORT INFORMATION
  Report Type: 
  Country: None (occurrence: None)
  Receive Date: 20060714
  Receipt Date: 20060703
  Transmission Date: 20061208
  Serious: Yes (Death)
  Sender: FDA-Public Use
  Company Number: 2006085057

PATIENT
  Sex: Male

DRUGS (22)
  1. ATORVASTATIN CALCIUM [Suspect]
  2. ASPIRIN [Suspect]
  3. DILTIAZEM [Suspect]
  4. FUROSEMIDE [Suspect]
  5. LACTULOSE [Suspect]
  6. SPIRIVA [Suspect]
     Indication: CHRONIC OBSTRUCTIVE PULMONARY DISEASE
     Dosage: 18 MCG
     Dates: start: 20030617, end: 20040701
  7. DEXAMETHASONE [Concomitant]
  8. BECLOMETHASONE (BECLOMETASONE) [Concomitant]
  9. COMBIVENT [Concomitant]
  10. DOSULEPIN (DOSULEPIN) [Concomitant]
  11. FRUMIL (AMILORIDE HYDROCHLORIDE, FUROSEMIDE) [Concomitant]
  12. GAVISCON [Concomitant]
  13. LANSOPRAZOLE [Concomitant]
  14. METOCLOPRAMIDE [Concomitant]
  15. NITROLINGUAL (GLYCERYL TRINITRATE) [Concomitant]
  16. NOZINAN (LEVOMEPROMAZINE) [Concomitant]
  17. OXYCODONE (OXYCODONE) [Concomitant]
  18. OXYGEN (OXYGEN) [Concomitant]
  19. SALBUTAMOL (SALBUTAMOL) [Concomitant]
  20. SPIRONOLACTONE [Concomitant]
  21. SYMBICORT (BUDESONIDE, FORMOTEROL FUMARATE) [Concomitant]
  22. TEMAZEPAM [Concomitant]

REACTIONS (1)
  - MESOTHELIOMA [None]
